FAERS Safety Report 5046581-9 (Version None)
Quarter: 2006Q2

REPORT INFORMATION
  Report Type: 
  Country: None (occurrence: None)
  Receive Date: 20060630
  Receipt Date: 20060623
  Transmission Date: 20061013
  Serious: Yes (Hospitalization, Other)
  Sender: FDA-Public Use
  Company Number: 2006-01209

PATIENT
  Age: 62 Year
  Sex: Female
  Weight: 84 kg

DRUGS (24)
  1. VELCADE [Suspect]
     Indication: MULTIPLE MYELOMA
     Dosage: 1.30 MG, INTRAVENOUS
     Route: 042
     Dates: start: 20060505, end: 20060512
  2. CYCLOPHOSPHAMIDE [Suspect]
     Indication: MULTIPLE MYELOMA
     Dosage: 1500.00 MG, INTRAVENOUS
     Route: 042
     Dates: start: 20060505, end: 20060512
  3. ALLOPURINOL [Concomitant]
  4. HYDROMORPHONE HCL [Concomitant]
  5. NOVALGIN (METAMIZOLE SODIUM) [Concomitant]
  6. RAMIPRIL [Concomitant]
  7. LACTULOSE [Concomitant]
  8. LORAZEPAM [Concomitant]
  9. ENOXAPARIN SODIUM [Concomitant]
  10. TEMAZEPAM [Concomitant]
  11. TOREM (TORASEMIDE) [Concomitant]
  12. FLUID INFUSION [Concomitant]
  13. METOCLOPRAMIDE [Concomitant]
  14. PANTOPRAZOLE SODIUM [Concomitant]
  15. SOLUTIONS FOR PARENTERAL NUTRITION [Concomitant]
  16. PAMIDRONATE DISODIUM [Concomitant]
  17. CLONIDINE [Concomitant]
  18. ADALAT [Concomitant]
  19. DIMENHYDRINATE [Concomitant]
  20. BELOC-ZOK MITE (METOPROLOL SUCCINATE) [Concomitant]
  21. LEVOFLOXACIN [Concomitant]
  22. NORVASC [Concomitant]
  23. MIRTAZAPINE [Concomitant]
  24. LEVOFLOXACIN [Concomitant]

REACTIONS (1)
  - LEUKOPENIA [None]
